FAERS Safety Report 6651051-8 (Version None)
Quarter: 2010Q1

REPORT INFORMATION
  Report Type: 
  Country: None (occurrence: None)
  Receive Date: 20100325
  Receipt Date: 20100322
  Transmission Date: 20100710
  Serious: Yes (Other)
  Sender: FDA-Public Use
  Company Number: FR-WYE-G05806110

PATIENT
  Age: 58 Year
  Sex: Female

DRUGS (1)
  1. ADVIL LIQUI-GELS [Suspect]
     Indication: PAIN
     Dosage: ON DEMAND
     Route: 048
     Dates: start: 20091101, end: 20091101

REACTIONS (1)
  - CYTOLYTIC HEPATITIS [None]
